FAERS Safety Report 4849065-3 (Version None)
Quarter: 2005Q4

REPORT INFORMATION
  Report Type: 
  Country: None (occurrence: None)
  Receive Date: 20051209
  Receipt Date: 20051130
  Transmission Date: 20060501
  Serious: Yes (Hospitalization, Other)
  Sender: FDA-Public Use
  Company Number: GB-JNJFOC-20051200030

PATIENT
  Sex: Male
  Weight: 87 kg

DRUGS (10)
  1. REMICADE [Suspect]
     Indication: RHEUMATOID ARTHRITIS
     Route: 042
  2. METHOTREXATE [Concomitant]
  3. ALENDRONATE SODIUM [Concomitant]
  4. CO-CODAMOL [Concomitant]
  5. CO-CODAMOL [Concomitant]
  6. COMBIVENT [Concomitant]
  7. COMBIVENT [Concomitant]
  8. DIHYDROCODEINE [Concomitant]
  9. LANSOPRAZOLE [Concomitant]
  10. ORAMORPH SR [Concomitant]

REACTIONS (1)
  - BASAL CELL CARCINOMA [None]
